FAERS Safety Report 21559878 (Version 3)
Quarter: 2023Q2

REPORT INFORMATION
  Report Type: Report from Study
  Country: FR (occurrence: FR)
  Receive Date: 20221107
  Receipt Date: 20230629
  Transmission Date: 20230722
  Serious: Yes (Death, Hospitalization, Other)
  Sender: FDA-Public Use
  Company Number: FR-002147023-NVSC2022FR248856

PATIENT
  Age: 64 Year
  Sex: Female

DRUGS (4)
  1. MEKINIST [Suspect]
     Active Substance: TRAMETINIB DIMETHYL SULFOXIDE
     Indication: Malignant melanoma
     Dosage: 1.5 MG, QD
     Route: 048
     Dates: start: 20220304, end: 20220325
  2. MEKINIST [Suspect]
     Active Substance: TRAMETINIB DIMETHYL SULFOXIDE
     Dosage: 1.5 MG, QD
     Route: 048
     Dates: start: 20220329, end: 20220722
  3. HYDROXYCHLOROQUINE SULFATE [Suspect]
     Active Substance: HYDROXYCHLOROQUINE SULFATE
     Indication: Malignant melanoma
     Dosage: 800 MG, QD
     Route: 048
     Dates: start: 20220304, end: 20220325
  4. HYDROXYCHLOROQUINE SULFATE [Suspect]
     Active Substance: HYDROXYCHLOROQUINE SULFATE
     Dosage: 800 MG, QD
     Route: 048
     Dates: start: 20220329, end: 20220722

REACTIONS (3)
  - Mucocutaneous toxicity [Recovered/Resolved]
  - Anaemia macrocytic [Recovered/Resolved]
  - Disease progression [Fatal]

NARRATIVE: CASE EVENT DATE: 20220325
